FAERS Safety Report 19931078 (Version 1)
Quarter: 2021Q4

REPORT INFORMATION
  Report Type: Spontaneous
  Country: DE (occurrence: DE)
  Receive Date: 20211007
  Receipt Date: 20211007
  Transmission Date: 20220304
  Serious: Yes (Other)
  Sender: FDA-Public Use
  Company Number: DE-GILEAD-2021-0550322

PATIENT
  Sex: Male

DRUGS (1)
  1. YESCARTA [Suspect]
     Active Substance: AXICABTAGENE CILOLEUCEL
     Indication: Diffuse large B-cell lymphoma recurrent
     Dosage: 0,4 X10*8 CELLS, UNK
     Route: 042
     Dates: start: 20210816, end: 20210816

REACTIONS (5)
  - Immune effector cell-associated neurotoxicity syndrome [Unknown]
  - Disease progression [Recovered/Resolved]
  - Tremor [Recovered/Resolved]
  - Aphasia [Unknown]
  - Disorientation [Unknown]

NARRATIVE: CASE EVENT DATE: 20210819
